FAERS Safety Report 25099508 (Version 1)
Quarter: 2025Q1

REPORT INFORMATION
  Report Type: Spontaneous
  Country: US (occurrence: US)
  Receive Date: 20250320
  Receipt Date: 20250320
  Transmission Date: 20250409
  Serious: No
  Sender: MYLAN
  Company Number: US-MYLANLABS-2025M1021036

PATIENT
  Age: 69 Year
  Sex: Female
  Weight: 80.74 kg

DRUGS (16)
  1. TYRVAYA [Suspect]
     Active Substance: VARENICLINE TARTRATE
     Indication: Dry eye
     Dosage: 0.03 MILLIGRAM, BID (ONE SPRAY EACH NOSTRIL TWICE A DAY 12 HOURS APART)
     Dates: start: 202502
  2. TYRVAYA [Suspect]
     Active Substance: VARENICLINE TARTRATE
     Dosage: 0.03 MILLIGRAM, BID (ONE SPRAY EACH NOSTRIL TWICE A DAY 12 HOURS APART)
     Route: 045
     Dates: start: 202502
  3. TYRVAYA [Suspect]
     Active Substance: VARENICLINE TARTRATE
     Dosage: 0.03 MILLIGRAM, BID (ONE SPRAY EACH NOSTRIL TWICE A DAY 12 HOURS APART)
     Route: 045
     Dates: start: 202502
  4. TYRVAYA [Suspect]
     Active Substance: VARENICLINE TARTRATE
     Dosage: 0.03 MILLIGRAM, BID (ONE SPRAY EACH NOSTRIL TWICE A DAY 12 HOURS APART)
     Dates: start: 202502
  5. MIEBO [Concomitant]
     Active Substance: PERFLUOROHEXYLOCTANE
     Indication: Dry eye
     Dosage: 1 GTT DROPS, QID (4 TIMES A DAY)
  6. MIEBO [Concomitant]
     Active Substance: PERFLUOROHEXYLOCTANE
     Dosage: 1 GTT DROPS, QID (4 TIMES A DAY)
     Route: 047
  7. MIEBO [Concomitant]
     Active Substance: PERFLUOROHEXYLOCTANE
     Dosage: 1 GTT DROPS, QID (4 TIMES A DAY)
     Route: 047
  8. MIEBO [Concomitant]
     Active Substance: PERFLUOROHEXYLOCTANE
     Dosage: 1 GTT DROPS, QID (4 TIMES A DAY)
  9. CEQUA [Concomitant]
     Active Substance: CYCLOSPORINE
     Indication: Dry eye
     Dosage: 0.9 PERCENT, BID (TWICE A DAY)
  10. CEQUA [Concomitant]
     Active Substance: CYCLOSPORINE
     Dosage: 0.9 PERCENT, BID (TWICE A DAY)
     Route: 047
  11. CEQUA [Concomitant]
     Active Substance: CYCLOSPORINE
     Dosage: 0.9 PERCENT, BID (TWICE A DAY)
     Route: 047
  12. CEQUA [Concomitant]
     Active Substance: CYCLOSPORINE
     Dosage: 0.9 PERCENT, BID (TWICE A DAY)
  13. LOSARTAN [Concomitant]
     Active Substance: LOSARTAN
     Indication: Hypertension
     Dosage: 50 MILLIGRAM, QD (ONCE A DAY)
  14. LOSARTAN [Concomitant]
     Active Substance: LOSARTAN
     Dosage: 50 MILLIGRAM, QD (ONCE A DAY)
     Route: 048
  15. LOSARTAN [Concomitant]
     Active Substance: LOSARTAN
     Dosage: 50 MILLIGRAM, QD (ONCE A DAY)
     Route: 048
  16. LOSARTAN [Concomitant]
     Active Substance: LOSARTAN
     Dosage: 50 MILLIGRAM, QD (ONCE A DAY)

REACTIONS (1)
  - Epistaxis [Recovered/Resolved]

NARRATIVE: CASE EVENT DATE: 20250306
